FAERS Safety Report 10041320 (Version 2)
Quarter: 2014Q2

REPORT INFORMATION
  Report Type: Spontaneous
  Country: BR (occurrence: BR)
  Receive Date: 20140327
  Receipt Date: 20140404
  Transmission Date: 20141212
  Serious: Yes (Hospitalization)
  Sender: FDA-Public Use
  Company Number: BR-SA-2014SA033727

PATIENT
  Age: 79 Year
  Sex: Female
  Weight: 57 kg

DRUGS (8)
  1. LANTUS [Suspect]
     Indication: TYPE 2 DIABETES MELLITUS
     Route: 058
     Dates: start: 2012
  2. CLIKSTAR [Concomitant]
     Indication: DEVICE THERAPY
     Dates: start: 2012
  3. BISOPROLOL [Concomitant]
     Indication: HYPERTENSION
     Route: 048
  4. SIMVASTATIN [Concomitant]
     Indication: BLOOD CHOLESTEROL
     Route: 048
  5. GLUCOVANCE [Concomitant]
     Indication: TYPE 2 DIABETES MELLITUS
     Route: 048
  6. AAS INFANTIL [Concomitant]
     Indication: THROMBOSIS PROPHYLAXIS
     Route: 048
  7. CLOPIDOGREL [Concomitant]
     Indication: THROMBOSIS PROPHYLAXIS
     Route: 048
  8. RAMIPRIL [Concomitant]
     Indication: HYPERTENSION
     Route: 048

REACTIONS (10)
  - Aneurysm [Recovering/Resolving]
  - Thrombosis [Recovering/Resolving]
  - Vascular pseudoaneurysm [Recovered/Resolved]
  - Vitamin D deficiency [Unknown]
  - Impaired healing [Unknown]
  - Post procedural persistent drain fluid [Unknown]
  - Thrombosis [Unknown]
  - Injection site pain [Recovered/Resolved]
  - Hyperglycaemia [Recovered/Resolved]
  - Slow speech [Unknown]
